FAERS Safety Report 25045860 (Version 1)
Quarter: 2025Q1

REPORT INFORMATION
  Report Type: Spontaneous
  Country: US (occurrence: None)
  Receive Date: 20250306
  Receipt Date: 20250306
  Transmission Date: 20250409
  Serious: Yes (Hospitalization)
  Sender: FDA-CTU
  Company Number: None

PATIENT
  Sex: Female

DRUGS (8)
  1. POMALYST [Suspect]
     Active Substance: POMALIDOMIDE
     Indication: Breast cancer female
     Route: 048
     Dates: start: 20240326
  2. CINNAMON [Concomitant]
     Active Substance: CINNAMON
  3. COMBIGAN [Concomitant]
     Active Substance: BRIMONIDINE TARTRATE\TIMOLOL MALEATE
  4. LORATADINE [Concomitant]
     Active Substance: LORATADINE
  5. OMEPRAZOLE [Concomitant]
     Active Substance: OMEPRAZOLE
  6. XGEVA [Concomitant]
     Active Substance: DENOSUMAB
  7. ZOLEDRONIC [Concomitant]
     Active Substance: ZOLEDRONIC ACID
  8. AZELASTINE [Concomitant]
     Active Substance: AZELASTINE

REACTIONS (2)
  - Hospitalisation [None]
  - Intentional dose omission [None]
